FAERS Safety Report 15181145 (Version 1)
Quarter: 2018Q3

REPORT INFORMATION
  Report Type: Spontaneous
  Country: SE (occurrence: SE)
  Receive Date: 20180723
  Receipt Date: 20180723
  Transmission Date: 20181010
  Serious: Yes (Congenital Anomaly, Other)
  Sender: FDA-Public Use
  Company Number: SE-PFIZER INC-2018288680

PATIENT

DRUGS (2)
  1. CYTOTEC [Suspect]
     Active Substance: MISOPROSTOL
     Indication: ABORTION
     Dosage: UNK
     Route: 064
     Dates: start: 20180125, end: 20180125
  2. MIFEGYNE [Concomitant]
     Active Substance: MIFEPRISTONE
     Route: 064
     Dates: start: 20180124, end: 20180124

REACTIONS (6)
  - Maternal exposure during pregnancy [Unknown]
  - Low set ears [Unknown]
  - Cleft palate [Unknown]
  - Talipes [Unknown]
  - Hand deformity [Unknown]
  - Hydrocephalus [Unknown]

NARRATIVE: CASE EVENT DATE: 20180320
